FAERS Safety Report 5455126-0 (Version None)
Quarter: 2007Q3

REPORT INFORMATION
  Report Type: 
  Country: None (occurrence: None)
  Receive Date: 20070914
  Receipt Date: 20070906
  Transmission Date: 20080115
  Serious: Yes (Other)
  Sender: FDA-Public Use
  Company Number: CHPA2007CA09460

PATIENT
  Age: 15 Year
  Sex: Female

DRUGS (2)
  1. TRIAMINIC NASAL CONGESTION (NCH)(PHENYLEPHRINE) DISPERSIBLE TABLET [Suspect]
     Indication: NASOPHARYNGITIS
     Dosage: 2.5 MG, ONCE/SINGLE, ORAL
     Route: 048
     Dates: start: 20070906, end: 20070906
  2. ZOLOFT [Concomitant]

REACTIONS (1)
  - CONVULSION [None]
